FAERS Safety Report 5276968-0 (Version None)
Quarter: 2007Q1

REPORT INFORMATION
  Report Type: 
  Country: None (occurrence: None)
  Receive Date: 20070327
  Receipt Date: 20070314
  Transmission Date: 20070707
  Serious: Yes (Hospitalization)
  Sender: FDA-Public Use
  Company Number: US-AMGEN-STX214898

PATIENT
  Sex: Female

DRUGS (2)
  1. ENBREL [Suspect]
     Indication: PSORIASIS
     Dates: start: 20070101
  2. UNSPECIFIED MEDICATION [Concomitant]
     Indication: PSORIASIS
     Route: 061

REACTIONS (3)
  - ACUTE PSYCHOSIS [None]
  - HALLUCINATION, AUDITORY [None]
  - SUICIDAL IDEATION [None]
